FAERS Safety Report 25604178 (Version 1)
Quarter: 2025Q3

REPORT INFORMATION
  Report Type: Spontaneous
  Country: US (occurrence: US)
  Receive Date: 20250725
  Receipt Date: 20250725
  Transmission Date: 20251021
  Serious: Yes (Hospitalization, Other)
  Sender: BRISTOL-MYERS SQUIBB COMPANY
  Company Number: US-BRISTOL-MYERS SQUIBB COMPANY-2025-103558

PATIENT
  Age: 70 Year
  Sex: Female

DRUGS (1)
  1. LENALIDOMIDE [Suspect]
     Active Substance: LENALIDOMIDE
     Indication: Plasma cell myeloma
     Dosage: 5 MG OR TAKE 1 WHOLE CAPSULE BY MOUTH WITH WATER W/ OR W/O FOOD EVERY DAY ON DAYS 1-21 OF 28 DAY CYC
     Route: 048

REACTIONS (1)
  - Pneumonia [Recovered/Resolved]
